FAERS Safety Report 4538284-1 (Version None)
Quarter: 2004Q4

REPORT INFORMATION
  Report Type: 
  Country: None (occurrence: None)
  Receive Date: 20041221
  Receipt Date: 20041202
  Transmission Date: 20050328
  Serious: Yes (Other)
  Sender: FDA-Public Use
  Company Number: 2004-ES-00229ES(1)

PATIENT
  Age: 79 Year
  Sex: Male

DRUGS (6)
  1. ATROVENT [Suspect]
     Indication: CHRONIC OBSTRUCTIVE AIRWAYS DISEASE
     Dosage: 20 MCG, 3 IH/6H), IH
     Route: 055
     Dates: start: 20040801
  2. FORMOTEROL      (TOLIPROLOL HCL, DIPYRIDAMOLE HCL) [Concomitant]
  3. ...... [Concomitant]
  4. FLUTICASONE (FLUTICASONE) (AE) [Concomitant]
  5. THEOPHYLLINE (THEOPHYLLINE) (KA) [Concomitant]
  6. TORASEMIDE (TORASEMIDE) (KA) [Concomitant]

REACTIONS (4)
  - BRONCHOSPASM [None]
  - DYSPNOEA [None]
  - INFLAMMATION [None]
  - LOCALISED OEDEMA [None]
